FAERS Safety Report 5162514-9 (Version None)
Quarter: 2006Q4

REPORT INFORMATION
  Report Type: 
  Country: None (occurrence: None)
  Receive Date: 20061201
  Receipt Date: 20061127
  Transmission Date: 20070319
  Serious: Yes (Other)
  Sender: FDA-Public Use
  Company Number: US-BAYER-200614777BCC

PATIENT
  Sex: Female

DRUGS (1)
  1. ASPIRIN [Suspect]
     Indication: DRUG USE FOR UNKNOWN INDICATION
     Dosage: TOTAL DAILY DOSE: 13000 MG  UNIT DOSE: 325 MG
     Route: 048
     Dates: start: 20061126

REACTIONS (2)
  - FEELING JITTERY [None]
  - GAIT DISTURBANCE [None]
